FAERS Safety Report 4381218-3 (Version None)
Quarter: 2004Q2

REPORT INFORMATION
  Report Type: 
  Country: None (occurrence: None)
  Receive Date: 20040617
  Receipt Date: 20040617
  Transmission Date: 20050107
  Serious: Yes (Life-Threatening, Disabling)
  Sender: FDA-Public Use
  Company Number: None

PATIENT
  Age: 43 Year
  Sex: Female
  Weight: 66.2252 kg

DRUGS (1)
  1. RISPERDAL [Suspect]
     Indication: SCHIZOPHRENIA, PARANOID TYPE
     Dosage: 2 WK INJECTION
     Dates: start: 20031001, end: 20040601

REACTIONS (12)
  - ANXIETY [None]
  - DYSPNOEA [None]
  - FATIGUE [None]
  - FEELING ABNORMAL [None]
  - GAIT DISTURBANCE [None]
  - INSOMNIA [None]
  - MOVEMENT DISORDER [None]
  - RESPIRATION ABNORMAL [None]
  - RHINITIS [None]
  - SPEECH DISORDER [None]
  - TOOTH DISCOLOURATION [None]
  - WEIGHT INCREASED [None]
